FAERS Safety Report 8489420-6 (Version None)
Quarter: 2012Q2

REPORT INFORMATION
  Report Type: 
  Country: None (occurrence: None)
  Receive Date: 20120628
  Receipt Date: 20120628
  Transmission Date: 20120825
  Serious: No
  Sender: FDA-Public Use
  Company Number: None

PATIENT
  Sex: Female

DRUGS (1)
  1. SUTENT [Suspect]
     Indication: RENAL CELL CARCINOMA
     Dosage: 50MG QD 14 DAYS, 14OFF PO
     Route: 048
     Dates: start: 20111201, end: 20120621

REACTIONS (6)
  - NASAL ULCER [None]
  - NAUSEA [None]
  - STOMATITIS [None]
  - SKIN DISCOLOURATION [None]
  - VAGINAL DISORDER [None]
  - TENDERNESS [None]
